FAERS Safety Report 16358449 (Version 3)
Quarter: 2019Q4

REPORT INFORMATION
  Report Type: Spontaneous
  Country: US (occurrence: US)
  Receive Date: 20190527
  Receipt Date: 20191209
  Transmission Date: 20200122
  Serious: Yes (Other)
  Sender: FDA-Public Use
  Company Number: US-PFIZER INC-2019225178

PATIENT
  Age: 69 Year
  Sex: Male

DRUGS (1)
  1. DILANTIN [Suspect]
     Active Substance: PHENYTOIN
     Indication: SEIZURE
     Dosage: UNK
     Route: 048
     Dates: end: 2005

REACTIONS (5)
  - Generalised anxiety disorder [Unknown]
  - Cerebellar atrophy [Unknown]
  - Coordination abnormal [Unknown]
  - Movement disorder [Unknown]
  - Tremor [Unknown]

NARRATIVE: CASE EVENT DATE: 201710
